FAERS Safety Report 5882328-1 (Version None)
Quarter: 2008Q3

REPORT INFORMATION
  Report Type: 
  Country: None (occurrence: None)
  Receive Date: 20080912
  Receipt Date: 20080729
  Transmission Date: 20090109
  Serious: Yes (Hospitalization)
  Sender: FDA-Public Use
  Company Number: US-ABBOTT-08P-163-0467422-00

PATIENT
  Sex: Male
  Weight: 92.162 kg

DRUGS (5)
  1. HUMIRA [Suspect]
     Indication: PSORIASIS
     Route: 050
     Dates: start: 20080612
  2. ALBUTEROL SPIROS [Concomitant]
     Indication: CHRONIC OBSTRUCTIVE PULMONARY DISEASE
     Route: 055
     Dates: start: 20040101
  3. NAPROXEN SODIUM [Concomitant]
     Indication: ARTHRITIS
     Route: 048
     Dates: start: 20070101
  4. ACETYLSALICYLIC ACID SRT [Concomitant]
     Indication: DRUG USE FOR UNKNOWN INDICATION
     Route: 048
  5. GLUCOSAMINE [Concomitant]
     Indication: OEDEMA PERIPHERAL
     Route: 048
     Dates: start: 20080601

REACTIONS (3)
  - DYSPNOEA [None]
  - PLEURAL FIBROSIS [None]
  - PYREXIA [None]
